FAERS Safety Report 7074773-6 (Version None)
Quarter: 2010Q4

REPORT INFORMATION
  Report Type: 
  Country: None (occurrence: None)
  Receive Date: 20101029
  Receipt Date: 20101019
  Transmission Date: 20110411
  Serious: Yes (Life-Threatening)
  Sender: FDA-Public Use
  Company Number: US-WYE-H18422610

PATIENT
  Sex: Female

DRUGS (1)
  1. EFFEXOR XR [Suspect]
     Route: 048

REACTIONS (3)
  - CRYING [None]
  - EMOTIONAL DISORDER [None]
  - FEELING OF DESPAIR [None]
